FAERS Safety Report 7419814-9 (Version None)
Quarter: 2011Q2

REPORT INFORMATION
  Report Type: 
  Country: None (occurrence: None)
  Receive Date: 20110418
  Receipt Date: 20110408
  Transmission Date: 20111010
  Serious: Yes (Hospitalization)
  Sender: FDA-Public Use
  Company Number: US-US-EMD SERONO, INC.-7052806

PATIENT
  Sex: Female

DRUGS (1)
  1. REBIF [Suspect]
     Indication: PRODUCT USED FOR UNKNOWN INDICATION
     Route: 058
     Dates: start: 20100210

REACTIONS (5)
  - NAUSEA [None]
  - HEADACHE [None]
  - BODY TEMPERATURE DECREASED [None]
  - NEPHROLITHIASIS [None]
  - CHILLS [None]
